FAERS Safety Report 10177941 (Version 2)
Quarter: 2014Q2

REPORT INFORMATION
  Report Type: Spontaneous
  Country: JP (occurrence: JP)
  Receive Date: 20140516
  Receipt Date: 20140529
  Transmission Date: 20141212
  Serious: Yes (Other)
  Sender: FDA-Public Use
  Company Number: PHHY2014JP059493

PATIENT
  Age: 62 Year
  Sex: Male

DRUGS (9)
  1. CICLOSPORIN [Suspect]
     Indication: GRANULOMATOSIS WITH POLYANGIITIS
     Dosage: 100 MG, PER DAY
     Route: 048
  2. CICLOSPORIN [Suspect]
     Indication: OFF LABEL USE
  3. PREDNISOLONE [Suspect]
     Dosage: 50 MG, PER DAY
  4. PREDNISOLONE [Suspect]
     Dosage: 30 MG, PER DAY
  5. PREDNISOLONE [Suspect]
     Dosage: 30 MG, PER DAY
  6. CYCLOPHOSPHAMIDE [Suspect]
     Dosage: 300 MG, PER DOSE
     Route: 042
  7. CYCLOPHOSPHAMIDE [Suspect]
     Dosage: 300 MG/ DOSE, QMO
  8. AZATHIOPRINE [Suspect]
     Route: 048
  9. RITUXIMAB [Concomitant]
     Dosage: 375 MG/M2, QW

REACTIONS (11)
  - Granulomatosis with polyangiitis [Unknown]
  - Disease recurrence [Unknown]
  - Antineutrophil cytoplasmic antibody decreased [Unknown]
  - Pancytopenia [Unknown]
  - Osteonecrosis [Unknown]
  - Spinal compression fracture [Unknown]
  - Osteoporosis [Unknown]
  - C-reactive protein increased [Unknown]
  - Renal failure chronic [Unknown]
  - Blood creatinine increased [Unknown]
  - Drug ineffective [Unknown]
